FAERS Safety Report 19051819 (Version 1)
Quarter: 2021Q1

REPORT INFORMATION
  Report Type: Spontaneous
  Country: EG (occurrence: EG)
  Receive Date: 20210324
  Receipt Date: 20210324
  Transmission Date: 20210420
  Serious: Yes (Death, Other)
  Sender: FDA-Public Use
  Company Number: EG-AMGEN-EGYSP2021042767

PATIENT

DRUGS (3)
  1. NEUPOGEN [Suspect]
     Active Substance: FILGRASTIM
     Indication: HAEMATOPOIETIC STEM CELL MOBILISATION
     Dosage: 300 MICROGRAM/ VIALS, DAILY FROM DAY ONE TO FIVE
     Route: 058
  2. XYLOCAINE [Concomitant]
     Active Substance: LIDOCAINE HYDROCHLORIDE
     Indication: ANAESTHESIA
     Dosage: UNK
     Route: 065
  3. DIAZEPAM. [Concomitant]
     Active Substance: DIAZEPAM
     Indication: SEDATION
     Dosage: 10 MILLIGRAM
     Route: 042

REACTIONS (6)
  - Drug ineffective for unapproved indication [Unknown]
  - Pyrexia [Recovered/Resolved]
  - Drug effective for unapproved indication [Unknown]
  - Haematemesis [Fatal]
  - Hepatorenal syndrome [Fatal]
  - Bone pain [Recovered/Resolved]
